FAERS Safety Report 24937526 (Version 2)
Quarter: 2025Q1

REPORT INFORMATION
  Report Type: Report from Study
  Country: PR (occurrence: PR)
  Receive Date: 20250206
  Receipt Date: 20250210
  Transmission Date: 20250408
  Serious: Yes (Hospitalization, Other)
  Sender: PFIZER
  Company Number: PR-PFIZER INC-202500025908

PATIENT
  Age: 33 Year
  Sex: Female

DRUGS (5)
  1. IBRANCE [Suspect]
     Active Substance: PALBOCICLIB
     Dates: start: 20250203
  2. XGEVA [Concomitant]
     Active Substance: DENOSUMAB
  3. LUPRON [Concomitant]
     Active Substance: LEUPROLIDE ACETATE
  4. FULVESTRANT [Concomitant]
     Active Substance: FULVESTRANT
  5. TAMOXIFEN [Concomitant]
     Active Substance: TAMOXIFEN

REACTIONS (2)
  - Lethargy [Not Recovered/Not Resolved]
  - Vomiting [Not Recovered/Not Resolved]

NARRATIVE: CASE EVENT DATE: 20250203
